FAERS Safety Report 18953522 (Version 1)
Quarter: 2021Q1

REPORT INFORMATION
  Report Type: Spontaneous
  Country: US (occurrence: US)
  Receive Date: 20210226
  Receipt Date: 20210226
  Transmission Date: 20210420
  Serious: Yes (Disabling)
  Sender: FDA-Public Use
  Company Number: None

PATIENT
  Sex: Female

DRUGS (1)
  1. CIPRO [Suspect]
     Active Substance: CIPROFLOXACIN HYDROCHLORIDE
     Indication: PSEUDOMONAS INFECTION
     Route: 048
     Dates: start: 20210109, end: 20210116

REACTIONS (6)
  - Asthenia [None]
  - Anxiety [None]
  - Myalgia [None]
  - Tendon disorder [None]
  - Arthropathy [None]
  - Abdominal discomfort [None]
